FAERS Safety Report 4619995-6 (Version None)
Quarter: 2005Q1

REPORT INFORMATION
  Report Type: 
  Country: None (occurrence: None)
  Receive Date: 20050323
  Receipt Date: 20050323
  Transmission Date: 20050727
  Serious: Yes (Life-Threatening)
  Sender: FDA-Public Use
  Company Number: None

PATIENT
  Sex: Male
  Weight: 106.1417 kg

DRUGS (2)
  1. POTASSIUM CHLORIDE [Suspect]
     Indication: CARDIAC FAILURE CONGESTIVE
     Dosage: 40 MEQ  TID
  2. POTASSIUM CHLORIDE [Suspect]
     Indication: CORONARY ARTERY ATHEROSCLEROSIS
     Dosage: 40 MEQ  TID

REACTIONS (3)
  - ABDOMINAL DISTENSION [None]
  - ASTHMA [None]
  - PHARMACEUTICAL PRODUCT COMPLAINT [None]
